FAERS Safety Report 23579545 (Version 1)
Quarter: 2024Q1

REPORT INFORMATION
  Report Type: Spontaneous
  Country: DE (occurrence: DE)
  Receive Date: 20240229
  Receipt Date: 20240229
  Transmission Date: 20240410
  Serious: Yes (Other)
  Sender: FDA-Public Use
  Company Number: DE-Ascend Therapeutics US, LLC-2153812

PATIENT
  Age: 70 Year
  Sex: Female
  Weight: 52 kg

DRUGS (8)
  1. ESTROGEL [Suspect]
     Active Substance: ESTRADIOL
     Route: 062
     Dates: start: 20220822
  2. ESTRADIOL HEMIHYDRATE [Suspect]
     Active Substance: ESTRADIOL HEMIHYDRATE
     Route: 062
  3. Advantan METHYLPREDNISOLONE ACEPONATE [Concomitant]
     Route: 065
  4. PROGESTERONE [Suspect]
     Active Substance: PROGESTERONE
     Route: 067
  5. PROGESTERONE [Suspect]
     Active Substance: PROGESTERONE
     Route: 067
  6. PROGESTERONE [Suspect]
     Active Substance: PROGESTERONE
     Route: 067
     Dates: start: 20220822
  7. ESTRADIOL HEMIHYDRATE [Suspect]
     Active Substance: ESTRADIOL HEMIHYDRATE
     Route: 062
  8. ESTRADIOL HEMIHYDRATE [Suspect]
     Active Substance: ESTRADIOL HEMIHYDRATE
     Route: 062

REACTIONS (10)
  - Hypertensive crisis [Recovered/Resolved]
  - Incorrect dose administered [Unknown]
  - Wrong technique in product usage process [Unknown]
  - Product communication issue [Unknown]
  - Eczema [Unknown]
  - Cheilitis [Unknown]
  - Chapped lips [Recovered/Resolved]
  - Lip exfoliation [Recovered/Resolved]
  - Lip disorder [Unknown]
  - Premature ageing [Unknown]

NARRATIVE: CASE EVENT DATE: 20220901
